FAERS Safety Report 12486839 (Version 3)
Quarter: 2016Q3

REPORT INFORMATION
  Report Type: Spontaneous
  Country: US (occurrence: US)
  Receive Date: 20160621
  Receipt Date: 20160922
  Transmission Date: 20161109
  Serious: No
  Sender: FDA-Public Use
  Company Number: US-ALLERGAN-1657584US

PATIENT
  Age: 41 Year
  Sex: Female
  Weight: 62.13 kg

DRUGS (1)
  1. LILETTA [Suspect]
     Active Substance: LEVONORGESTREL
     Indication: CONTRACEPTION
     Dosage: UNK UNK, SINGLE
     Route: 015
     Dates: start: 20160510, end: 20160510

REACTIONS (4)
  - Procedural pain [Unknown]
  - Vaginal haemorrhage [Not Recovered/Not Resolved]
  - Device expulsion [Unknown]
  - Pelvic pain [Not Recovered/Not Resolved]

NARRATIVE: CASE EVENT DATE: 20160510
